FAERS Safety Report 22228655 (Version 1)
Quarter: 2023Q2

REPORT INFORMATION
  Report Type: Report from Study
  Country: CA (occurrence: CA)
  Receive Date: 20230419
  Receipt Date: 20230419
  Transmission Date: 20230722
  Serious: Yes (Other)
  Sender: FDA-Public Use
  Company Number: CA-HARMONY BIOSCIENCES-2023HMY00610

PATIENT
  Age: 29 Year
  Sex: Female

DRUGS (5)
  1. WAKIX [Suspect]
     Active Substance: PITOLISANT HYDROCHLORIDE
     Indication: Narcolepsy
     Dosage: UNK
     Dates: start: 20230321, end: 20230325
  2. WAKIX [Suspect]
     Active Substance: PITOLISANT HYDROCHLORIDE
     Indication: Cataplexy
  3. XYREM [Concomitant]
     Active Substance: SODIUM OXYBATE
  4. VITAMIN D NOS [Concomitant]
     Active Substance: VITAMIN D NOS
  5. TRYPTOPHAN [Concomitant]
     Active Substance: TRYPTOPHAN

REACTIONS (7)
  - Dystonia [Unknown]
  - Reading disorder [Unknown]
  - Apathy [Unknown]
  - Dyspepsia [Unknown]
  - Gastrointestinal pain [Unknown]
  - Middle insomnia [Unknown]
  - Headache [Unknown]

NARRATIVE: CASE EVENT DATE: 20230301
